FAERS Safety Report 5701524-7 (Version None)
Quarter: 2008Q2

REPORT INFORMATION
  Report Type: 
  Country: None (occurrence: None)
  Receive Date: 20080408
  Receipt Date: 20080329
  Transmission Date: 20081010
  Serious: Yes (Other)
  Sender: FDA-Public Use
  Company Number: TPA2007A01997

PATIENT
  Age: 75 Year
  Sex: Female
  Weight: 77.1115 kg

DRUGS (9)
  1. ACTOS [Suspect]
     Indication: TYPE 2 DIABETES MELLITUS
     Dosage: 45 MG, QPM, PER ORAL
     Route: 048
     Dates: start: 20010101, end: 20070901
  2. HYDROCHLOROTHIAZIDE [Concomitant]
  3. ALTACE [Concomitant]
  4. LIPITOR [Concomitant]
  5. DETROL [Concomitant]
  6. FOSAMAX + D (ALENDRONATE SODIUM) [Concomitant]
  7. CELEBREX [Concomitant]
  8. LEVOXYL [Concomitant]
  9. GLUCOTROL XL [Concomitant]

REACTIONS (4)
  - FLUID RETENTION [None]
  - STRESS FRACTURE [None]
  - TIBIA FRACTURE [None]
  - WEIGHT INCREASED [None]
